FAERS Safety Report 7531397-1 (Version None)
Quarter: 2011Q2

REPORT INFORMATION
  Report Type: 
  Country: None (occurrence: None)
  Receive Date: 20110608
  Receipt Date: 20110525
  Transmission Date: 20111010
  Serious: Yes (Hospitalization, Other)
  Sender: FDA-Public Use
  Company Number: PHMT2007CA01729

PATIENT
  Sex: Female

DRUGS (16)
  1. SANDOSTATIN LAR [Suspect]
     Indication: NEUROENDOCRINE TUMOUR
     Dosage: 40 MG, TIW
     Route: 030
     Dates: start: 20000701
  2. NORVASC [Concomitant]
  3. CHOLESTYRAMINE RESIN [Concomitant]
  4. SERTRALINE HYDROCHLORIDE [Concomitant]
  5. SANDOSTATIN LAR [Suspect]
     Dosage: 30 MG EVERY 4 WEEKS
     Route: 030
  6. SANDOSTATIN LAR [Suspect]
     Dosage: 40 MG, EVERY 4 WEEKS
     Route: 030
  7. ESTROGEN NOS [Concomitant]
  8. RABEPRAZOLE SODIUM [Concomitant]
  9. DIURETICS [Concomitant]
     Dosage: UNK
     Dates: end: 20100630
  10. SANDOSTATIN LAR [Suspect]
     Dosage: 30 MG, EVERY 4 WEEKS
     Route: 030
     Dates: end: 20090806
  11. NADOLOL [Concomitant]
  12. PANTOPRAZOLE [Concomitant]
  13. RADIATION TREATMENT [Concomitant]
  14. SANDOSTATIN LAR [Suspect]
     Dosage: 30 MG, QMO
     Route: 030
     Dates: start: 20090806
  15. CHLORTHALIDONE [Concomitant]
  16. FUROSEMIDE [Concomitant]

REACTIONS (30)
  - POST PROCEDURAL COMPLICATION [None]
  - BLOOD PRESSURE DECREASED [None]
  - RECTAL HAEMORRHAGE [None]
  - ABDOMINAL PAIN UPPER [None]
  - BIOPSY THYROID GLAND [None]
  - PALLOR [None]
  - URINARY RETENTION [None]
  - BACK PAIN [None]
  - CONSTIPATION [None]
  - ABDOMINAL PAIN [None]
  - ARTHRALGIA [None]
  - MUSCULOSKELETAL CHEST PAIN [None]
  - NAUSEA [None]
  - INFLUENZA LIKE ILLNESS [None]
  - HEADACHE [None]
  - ASTHENIA [None]
  - HAEMOGLOBIN DECREASED [None]
  - DIARRHOEA [None]
  - PERICARDIAL EFFUSION [None]
  - MUSCLE SPASMS [None]
  - DEPRESSION [None]
  - EPISTAXIS [None]
  - BLOOD PRESSURE INCREASED [None]
  - HEPATIC NEOPLASM [None]
  - FATIGUE [None]
  - DYSPNOEA [None]
  - THYROID DISORDER [None]
  - LOCAL SWELLING [None]
  - NASOPHARYNGITIS [None]
  - PAIN [None]
